FAERS Safety Report 14961774 (Version 1)
Quarter: 2018Q2

REPORT INFORMATION
  Report Type: Other
  Country: GB (occurrence: GB)
  Receive Date: 20180601
  Receipt Date: 20180601
  Transmission Date: 20180711
  Serious: Yes (Other)
  Sender: FDA-Public Use
  Company Number: GB-ASTELLAS-2018US024233

PATIENT
  Age: 16 Year
  Sex: Female
  Weight: 50 kg

DRUGS (1)
  1. MIRABEGRON [Suspect]
     Active Substance: MIRABEGRON
     Indication: HYPERTONIC BLADDER
     Route: 048

REACTIONS (2)
  - Lethargy [Recovered/Resolved]
  - Depressed mood [Recovered/Resolved]

NARRATIVE: CASE EVENT DATE: 201711
